FAERS Safety Report 13499698 (Version 2)
Quarter: 2017Q3

REPORT INFORMATION
  Report Type: Spontaneous
  Country: US (occurrence: US)
  Receive Date: 20170501
  Receipt Date: 20170811
  Transmission Date: 20171127
  Serious: No
  Sender: FDA-Public Use
  Company Number: US-009507513-1704USA005151

PATIENT
  Age: 70 Year
  Sex: Male

DRUGS (5)
  1. BELSOMRA [Suspect]
     Active Substance: SUVOREXANT
     Dosage: 10 MG (1 TABLET), ^ABOUT EVERY THREE DAYS^
     Route: 048
     Dates: start: 201603
  2. BELSOMRA [Suspect]
     Active Substance: SUVOREXANT
     Dosage: 10 MG, BID (LAST NIGHT
     Route: 048
     Dates: start: 20170411, end: 20170411
  3. DIPHENHYDRAMINE. [Concomitant]
     Active Substance: DIPHENHYDRAMINE
     Dosage: FREQUENCY: REPORTED AS ^ON OTHER EVENINGS^
  4. BELSOMRA [Suspect]
     Active Substance: SUVOREXANT
     Dosage: 10 MG, Q3D
     Route: 048
     Dates: start: 201704
  5. BELSOMRA [Suspect]
     Active Substance: SUVOREXANT
     Indication: INSOMNIA
     Dosage: 10 MG (1 TABLET), ^ABOUT EVERY THREE DAYS^
     Route: 048
     Dates: start: 201603, end: 20170410

REACTIONS (3)
  - Product use issue [Unknown]
  - Drug ineffective [Unknown]
  - Overdose [Unknown]

NARRATIVE: CASE EVENT DATE: 201703
